FAERS Safety Report 22065016 (Version 1)
Quarter: 2023Q1

REPORT INFORMATION
  Report Type: Spontaneous
  Country: AU (occurrence: AU)
  Receive Date: 20230306
  Receipt Date: 20230306
  Transmission Date: 20230417
  Serious: Yes (Other)
  Sender: FDA-Public Use
  Company Number: AU-002147023-NVSC2023AU046267

PATIENT
  Age: 46 Year
  Sex: Female

DRUGS (2)
  1. CYCLOSPORINE [Suspect]
     Active Substance: CYCLOSPORINE
     Indication: Chronic graft versus host disease
     Dosage: UNK
     Route: 065
  2. PREDNISONE [Suspect]
     Active Substance: PREDNISONE
     Indication: Chronic graft versus host disease
     Dosage: UNK
     Route: 065

REACTIONS (8)
  - Chronic graft versus host disease [Unknown]
  - Disease progression [Unknown]
  - Dermatitis bullous [Unknown]
  - Salmonellosis [Unknown]
  - Peripheral swelling [Unknown]
  - Drug intolerance [Unknown]
  - Muscular weakness [Unknown]
  - Mental disorder [Unknown]

NARRATIVE: CASE EVENT DATE: 20220901
